FAERS Safety Report 14298317 (Version 1)
Quarter: 2017Q4

REPORT INFORMATION
  Report Type: Spontaneous
  Country: US (occurrence: US)
  Receive Date: 20171218
  Receipt Date: 20171218
  Transmission Date: 20180321
  Serious: No
  Sender: FDA-Public Use
  Company Number: US-BAYER-2017-238650

PATIENT
  Age: 32 Year
  Sex: Female

DRUGS (1)
  1. SKYLA [Suspect]
     Active Substance: LEVONORGESTREL
     Indication: CONTRACEPTION
     Dosage: 14 MCG/24HR, CONT
     Route: 015
     Dates: start: 201705

REACTIONS (12)
  - Hypomenorrhoea [None]
  - Palpitations [None]
  - Nausea [None]
  - Hot flush [None]
  - Feeling abnormal [None]
  - Heart rate increased [None]
  - Dizziness [None]
  - Hypothyroidism [None]
  - Blood pressure increased [None]
  - Presyncope [None]
  - Head discomfort [None]
  - Ventricular extrasystoles [None]
